FAERS Safety Report 5061914-5 (Version None)
Quarter: 2006Q3

REPORT INFORMATION
  Report Type: 
  Country: None (occurrence: None)
  Receive Date: 20060721
  Receipt Date: 20060710
  Transmission Date: 20061208
  Serious: Yes (Other)
  Sender: FDA-Public Use
  Company Number: B0431389A

PATIENT
  Age: 60 Year
  Sex: Male

DRUGS (3)
  1. ZANTAC [Suspect]
     Dosage: 150/TWICE PER DAY/ORAL
     Route: 048
  2. FAMOTIDINE [Concomitant]
  3. NIZATIDINE [Concomitant]

REACTIONS (11)
  - BRONCHOSPASM [None]
  - CHEST DISCOMFORT [None]
  - COUGH [None]
  - DYSPNOEA [None]
  - NASAL DISCOMFORT [None]
  - PROLONGED EXPIRATION [None]
  - RHINORRHOEA [None]
  - SNEEZING [None]
  - TACHYPNOEA [None]
  - TYPE I HYPERSENSITIVITY [None]
  - WHEEZING [None]
